FAERS Safety Report 12169267 (Version 2)
Quarter: 2016Q1

REPORT INFORMATION
  Report Type: Spontaneous
  Country: US (occurrence: US)
  Receive Date: 20160310
  Receipt Date: 20160310
  Transmission Date: 20160526
  Serious: No
  Sender: FDA-Public Use
  Company Number: US-OTSUKA-2015_000750

PATIENT
  Sex: Female

DRUGS (1)
  1. ABILIFY MAINTENA [Suspect]
     Active Substance: ARIPIPRAZOLE
     Indication: PRODUCT USED FOR UNKNOWN INDICATION
     Dosage: UNK
     Route: 061
     Dates: start: 201504, end: 201504

REACTIONS (3)
  - Product physical issue [Unknown]
  - Accidental exposure to product [Unknown]
  - No adverse event [Unknown]

NARRATIVE: CASE EVENT DATE: 201504
